FAERS Safety Report 4323805-4 (Version None)
Quarter: 2004Q1

REPORT INFORMATION
  Report Type: 
  Country: None (occurrence: None)
  Receive Date: 20040326
  Receipt Date: 20040319
  Transmission Date: 20041129
  Serious: Yes (Death, Other)
  Sender: FDA-Public Use
  Company Number: US-BRISTOL-MYERS SQUIBB COMPANY-12538419

PATIENT
  Age: 32 Year
  Sex: Male

DRUGS (3)
  1. TEQUIN [Suspect]
     Indication: PNEUMONIA
     Route: 042
  2. PENICILLIN [Concomitant]
  3. CLINDAMYCIN HCL [Concomitant]

REACTIONS (4)
  - DEATH [None]
  - PNEUMOTHORAX [None]
  - PYOTHORAX [None]
  - RESPIRATORY FAILURE [None]
